FAERS Safety Report 5989509-7 (Version None)
Quarter: 2008Q4

REPORT INFORMATION
  Report Type: 
  Country: None (occurrence: None)
  Receive Date: 20081208
  Receipt Date: 20081121
  Transmission Date: 20090506
  Serious: Yes (Other)
  Sender: FDA-Public Use
  Company Number: 200811015

PATIENT
  Age: 55 Year
  Sex: Male

DRUGS (1)
  1. TESTIM [Suspect]
     Dates: start: 20070101

REACTIONS (1)
  - PROSTATE CANCER [None]
